FAERS Safety Report 13626247 (Version 1)
Quarter: 2017Q2

REPORT INFORMATION
  Report Type: Spontaneous
  Country: US (occurrence: US)
  Receive Date: 20170531
  Receipt Date: 20170531
  Transmission Date: 20170830
  Serious: Yes (Other)
  Sender: FDA-Public Use
  Company Number: US-ASTELLAS-1319328

PATIENT
  Sex: Female

DRUGS (11)
  1. TARCEVA [Suspect]
     Active Substance: ERLOTINIB HYDROCHLORIDE
     Indication: LUNG NEOPLASM MALIGNANT
     Route: 048
     Dates: start: 20131126
  2. PREDNISONE. [Concomitant]
     Active Substance: PREDNISONE
  3. BARIUM SULFATE [Concomitant]
     Active Substance: BARIUM SULFATE
  4. PERCOCET [Concomitant]
     Active Substance: ACETAMINOPHEN\OXYCODONE HYDROCHLORIDE
  5. LEVOXYL [Concomitant]
     Active Substance: LEVOTHYROXINE SODIUM
  6. RANITIDINE HCL [Concomitant]
     Active Substance: RANITIDINE HYDROCHLORIDE
  7. POLYETHYLENE GLYCOL [Concomitant]
     Active Substance: POLYETHYLENE GLYCOLS
  8. CALCIUM D 500 [Concomitant]
     Active Substance: CALCIUM\VITAMIN D
  9. LACTULOSE. [Concomitant]
     Active Substance: LACTULOSE
     Route: 065
  10. HYDROCHLOROTHIAZIDE. [Concomitant]
     Active Substance: HYDROCHLOROTHIAZIDE
  11. SYMBICORT [Concomitant]
     Active Substance: BUDESONIDE\FORMOTEROL FUMARATE DIHYDRATE

REACTIONS (2)
  - Fatigue [Unknown]
  - Disease progression [Unknown]
